FAERS Safety Report 9363693 (Version 1)
Quarter: 2013Q2

REPORT INFORMATION
  Report Type: Spontaneous
  Country: US (occurrence: US)
  Receive Date: 20130624
  Receipt Date: 20130624
  Transmission Date: 20140414
  Serious: No
  Sender: FDA-Public Use
  Company Number: US-PFIZER INC-2013184313

PATIENT
  Age: 26 Year
  Sex: Male
  Weight: 68.03 kg

DRUGS (1)
  1. ATGAM [Suspect]
     Indication: APLASTIC ANAEMIA
     Dosage: UNKNOWN DOSE, ONCE A DAY
     Route: 023
     Dates: start: 201306, end: 201306

REACTIONS (3)
  - Injection site pruritus [Unknown]
  - Injection site urticaria [Unknown]
  - Skin test positive [Unknown]
